FAERS Safety Report 6045397-4 (Version None)
Quarter: 2009Q1

REPORT INFORMATION
  Report Type: 
  Country: None (occurrence: None)
  Receive Date: 20090121
  Receipt Date: 20090116
  Transmission Date: 20090719
  Serious: Yes (Hospitalization)
  Sender: FDA-Public Use
  Company Number: US-BAYER-200910169BCC

PATIENT
  Age: 39 Year
  Sex: Female
  Weight: 83 kg

DRUGS (1)
  1. ASPIRIN [Suspect]
     Indication: HEADACHE
     Dosage: UNIT DOSE: 1 DF

REACTIONS (5)
  - APHONIA [None]
  - HYPERSENSITIVITY [None]
  - PRURITUS GENERALISED [None]
  - SWELLING FACE [None]
  - URTICARIA [None]
